FAERS Safety Report 9739798 (Version 1)
Quarter: 2013Q4

REPORT INFORMATION
  Report Type: Spontaneous
  Country: US (occurrence: US)
  Receive Date: 20131209
  Receipt Date: 20131209
  Transmission Date: 20140711
  Serious: No
  Sender: FDA-Public Use
  Company Number: US-ASTELLAS-2013US011822

PATIENT
  Age: 75 Year
  Sex: Male
  Weight: 68 kg

DRUGS (4)
  1. XTANDI [Suspect]
     Indication: PROSTATE CANCER
     Dosage: 160 MG, UID/QD
     Route: 048
     Dates: start: 201310
  2. RYTHMOL                            /00546301/ [Concomitant]
     Indication: CARDIAC DISORDER
     Dosage: UNK
     Route: 065
     Dates: start: 2005
  3. LISINOPRIL [Concomitant]
     Indication: CARDIAC DISORDER
     Dosage: UNK
     Dates: start: 2005
  4. BYSTOLIC [Concomitant]
     Indication: CARDIAC DISORDER
     Dosage: UNK
     Route: 065
     Dates: start: 2010

REACTIONS (11)
  - Decreased appetite [Unknown]
  - Abdominal discomfort [Not Recovered/Not Resolved]
  - Initial insomnia [Unknown]
  - Arthralgia [Unknown]
  - Nasopharyngitis [Unknown]
  - Back pain [Unknown]
  - Asthenia [Unknown]
  - Hot flush [Unknown]
  - Anxiety [Unknown]
  - Headache [Unknown]
  - Fatigue [Unknown]
